FAERS Safety Report 24802048 (Version 2)
Quarter: 2025Q1

REPORT INFORMATION
  Report Type: Other
  Country: US (occurrence: US)
  Receive Date: 20250102
  Receipt Date: 20250206
  Transmission Date: 20250409
  Serious: No
  Sender: APOTEX
  Company Number: US-APOTEX-2024AP019764

PATIENT

DRUGS (1)
  1. LISDEXAMFETAMINE DIMESYLATE [Suspect]
     Active Substance: LISDEXAMFETAMINE DIMESYLATE
     Indication: Attention deficit hyperactivity disorder
     Route: 065

REACTIONS (10)
  - Confusional state [Unknown]
  - Product availability issue [Unknown]
  - Fear [Unknown]
  - Apathy [Unknown]
  - Disturbance in attention [Unknown]
  - Asthenia [Unknown]
  - Product substitution issue [Unknown]
  - Fatigue [Unknown]
  - Insomnia [Unknown]
  - Therapy non-responder [Unknown]
